FAERS Safety Report 8604099-8 (Version None)
Quarter: 2012Q3

REPORT INFORMATION
  Report Type: 
  Country: None (occurrence: None)
  Receive Date: 20120820
  Receipt Date: 20120809
  Transmission Date: 20120928
  Serious: No
  Sender: FDA-Public Use
  Company Number: US-BIOGENIDEC-2012BI031653

PATIENT
  Age: 47 Year
  Sex: Female

DRUGS (3)
  1. TYSABRI [Suspect]
     Indication: MULTIPLE SCLEROSIS
     Route: 042
     Dates: start: 20100630, end: 20110601
  2. PROVIGIL [Concomitant]
     Indication: FATIGUE
  3. TYSABRI [Suspect]
     Route: 042
     Dates: start: 20110901

REACTIONS (6)
  - MUSCULOSKELETAL DISORDER [None]
  - ASPARTATE AMINOTRANSFERASE INCREASED [None]
  - IMMUNE SYSTEM DISORDER [None]
  - CENTRAL NERVOUS SYSTEM LESION [None]
  - STRESS [None]
  - MULTIPLE SCLEROSIS RELAPSE [None]
